FAERS Safety Report 5303661-8 (Version None)
Quarter: 2007Q2

REPORT INFORMATION
  Report Type: 
  Country: None (occurrence: None)
  Receive Date: 20070420
  Receipt Date: 20070409
  Transmission Date: 20071010
  Serious: Yes (Hospitalization, Other)
  Sender: FDA-Public Use
  Company Number: ES-PFIZER INC-2007015365

PATIENT
  Age: 51 Year
  Sex: Male

DRUGS (8)
  1. LYRICA [Suspect]
     Indication: ANXIETY
     Route: 048
     Dates: start: 20061031, end: 20070129
  2. LYRICA [Suspect]
     Indication: EPILEPSY
  3. GABAPENTIN [Suspect]
     Dosage: DAILY DOSE:300MG
     Dates: start: 20070101, end: 20070101
  4. RISPERDAL [Concomitant]
     Route: 048
  5. ORFIDAL [Concomitant]
     Route: 048
     Dates: start: 20060101
  6. REXER [Concomitant]
     Route: 048
     Dates: start: 20060209
  7. KEPPRA [Concomitant]
     Route: 048
     Dates: start: 20040101, end: 20061101
  8. OMEPRAZOLE [Concomitant]
     Route: 048
     Dates: start: 20040101

REACTIONS (1)
  - PRIAPISM [None]
